FAERS Safety Report 9711546 (Version 1)
Quarter: 2013Q4

REPORT INFORMATION
  Report Type: Spontaneous
  Country: US (occurrence: US)
  Receive Date: 20131126
  Receipt Date: 20131126
  Transmission Date: 20140711
  Serious: No
  Sender: FDA-Public Use
  Company Number: US-BRISTOL-MYERS SQUIBB COMPANY-19074657

PATIENT
  Age: 48 Year
  Sex: Male
  Weight: 117 kg

DRUGS (5)
  1. BYDUREON 2MG SUSPENSION [Suspect]
     Indication: TYPE 2 DIABETES MELLITUS
     Route: 058
  2. GLIPIZIDE [Concomitant]
  3. METFORMIN [Concomitant]
  4. LISINOPRIL [Concomitant]
  5. PRAVASTATIN SODIUM [Concomitant]

REACTIONS (1)
  - Drug screen positive [Unknown]
